FAERS Safety Report 8561515-8 (Version None)
Quarter: 2012Q3

REPORT INFORMATION
  Report Type: 
  Country: None (occurrence: None)
  Receive Date: 20120802
  Receipt Date: 20120712
  Transmission Date: 20120928
  Serious: No
  Sender: FDA-Public Use
  Company Number: US-ASTRAZENECA-2012SE48729

PATIENT
  Age: 55 Year
  Sex: Male

DRUGS (1)
  1. RHINOCORT [Suspect]
     Route: 045

REACTIONS (3)
  - MALAISE [None]
  - SEASONAL ALLERGY [None]
  - DRUG DOSE OMISSION [None]
